FAERS Safety Report 7046437-6 (Version None)
Quarter: 2010Q4

REPORT INFORMATION
  Report Type: 
  Country: None (occurrence: None)
  Receive Date: 20101014
  Receipt Date: 20101005
  Transmission Date: 20110411
  Serious: No
  Sender: FDA-Public Use
  Company Number: US-PFIZER INC-2010127050

PATIENT
  Sex: Female
  Weight: 84.354 kg

DRUGS (7)
  1. NEURONTIN [Suspect]
     Indication: PAIN
     Dosage: 300 MG, 1X/DAY
     Route: 048
     Dates: start: 20101001
  2. NEURONTIN [Suspect]
     Dosage: 300 MG, 2X/DAY
     Route: 048
     Dates: start: 20101002
  3. NEURONTIN [Suspect]
     Dosage: 300 MG, 3X/DAY
     Route: 048
     Dates: start: 20101003
  4. METFORMIN [Concomitant]
     Dosage: UNK
  5. IBUPROFEN [Concomitant]
     Dosage: UNK
  6. ELAVIL [Concomitant]
     Dosage: UNK
  7. TOPAMAX [Concomitant]
     Dosage: UNK

REACTIONS (1)
  - NYSTAGMUS [None]
